FAERS Safety Report 8819216 (Version 1)
Quarter: 2012Q4

REPORT INFORMATION
  Report Type: 
  Country: US (occurrence: US)
  Receive Date: 20121001
  Receipt Date: 20121001
  Transmission Date: 20130627
  Serious: No
  Sender: FDA-Public Use
  Company Number: US-PFIZER INC-2012240221

PATIENT
  Age: 82 Year
  Sex: Female
  Weight: 113 kg

DRUGS (2)
  1. LIPITOR [Suspect]
     Indication: BLOOD PRESSURE ABNORMAL
     Dosage: 10 mg, daily
     Dates: end: 201209
  2. DETROL LA [Suspect]
     Indication: URINARY INCONTINENCE
     Dosage: 2 mg, daily
     Dates: end: 201209

REACTIONS (3)
  - Stress [Unknown]
  - Blood glucose abnormal [Unknown]
  - Pollakiuria [Unknown]
